FAERS Safety Report 20504084 (Version 1)
Quarter: 2022Q1

REPORT INFORMATION
  Report Type: Report from Study
  Country: US (occurrence: US)
  Receive Date: 20220222
  Receipt Date: 20220222
  Transmission Date: 20220423
  Serious: Yes (Disabling, Other)
  Sender: FDA-Public Use
  Company Number: US-002147023-PHHO2015US005633

PATIENT
  Age: 53 Year
  Sex: Female
  Weight: 89.8 kg

DRUGS (3)
  1. BINIMETINIB [Suspect]
     Active Substance: BINIMETINIB
     Indication: Gastrointestinal stromal tumour
     Dosage: 45 MG, 2X/DAY
     Route: 048
     Dates: start: 20150102, end: 20150403
  2. BINIMETINIB [Suspect]
     Active Substance: BINIMETINIB
     Dosage: 30MG QAM, 45MG QPM
     Route: 048
     Dates: start: 20150409
  3. IMATINIB [Suspect]
     Active Substance: IMATINIB
     Indication: Gastrointestinal stromal tumour
     Dosage: 400 MG, 1X/DAY
     Route: 048
     Dates: start: 20150102, end: 20150403

REACTIONS (1)
  - Dropped head syndrome [Recovered/Resolved]

NARRATIVE: CASE EVENT DATE: 20150402
